FAERS Safety Report 6656183-6 (Version None)
Quarter: 2010Q1

REPORT INFORMATION
  Report Type: 
  Country: None (occurrence: None)
  Receive Date: 20100326
  Receipt Date: 20100326
  Transmission Date: 20100710
  Serious: Yes (Death)
  Sender: FDA-Public Use
  Company Number: None

PATIENT
  Age: 84 Year
  Sex: Female
  Weight: 65.7716 kg

DRUGS (1)
  1. DURAGESIC-25 [Suspect]
     Indication: BACK PAIN
     Dosage: EVERY 72 HOURS TRANSDERMAL
     Route: 062
     Dates: start: 20070102, end: 20080223

REACTIONS (6)
  - ANOXIC ENCEPHALOPATHY [None]
  - ASTHENIA [None]
  - DYSPNOEA [None]
  - OVERDOSE [None]
  - PRODUCT QUALITY ISSUE [None]
  - RESPIRATORY DISTRESS [None]
